FAERS Safety Report 25962687 (Version 2)
Quarter: 2025Q4

REPORT INFORMATION
  Report Type: Report from Study
  Country: CA (occurrence: CA)
  Receive Date: 20251027
  Receipt Date: 20251031
  Transmission Date: 20260118
  Serious: Yes (Death)
  Sender: MYLAN
  Company Number: CA-MYLANLABS-2025M1090653

PATIENT
  Age: 69 Year
  Sex: Male

DRUGS (3)
  1. CLOZAPINE [Suspect]
     Active Substance: CLOZAPINE
     Indication: Schizophrenia
     Dosage: UNK (ON OR ABOUT 8-MAR-2000) ( TAKING 300 MG CLOZAPINE DAILY IN THE MORNING 350 MG BEDTIME)
  2. CLOZAPINE [Suspect]
     Active Substance: CLOZAPINE
     Indication: Bipolar disorder
  3. RISPERIDONE [Concomitant]
     Active Substance: RISPERIDONE
     Dosage: 0. 25 MILLIGRAM, QD (1 TABLET .25 MG DAILY)

REACTIONS (1)
  - Pneumonia aspiration [Fatal]

NARRATIVE: CASE EVENT DATE: 20250917
